FAERS Safety Report 26023575 (Version 1)
Quarter: 2025Q4

REPORT INFORMATION
  Report Type: Spontaneous
  Country: EU (occurrence: EU)
  Receive Date: 20251111
  Receipt Date: 20251111
  Transmission Date: 20260117
  Serious: Yes (Other)
  Sender: BOEHRINGER INGELHEIM
  Company Number: EU-BoehringerIngelheim-2025-BI-105443

PATIENT
  Sex: Male
  Weight: 88 kg

DRUGS (16)
  1. NINTEDANIB [Suspect]
     Active Substance: NINTEDANIB
     Indication: Hypersensitivity pneumonitis
  2. NINTEDANIB [Suspect]
     Active Substance: NINTEDANIB
     Indication: Pulmonary fibrosis
  3. OXYGEN [Concomitant]
     Active Substance: OXYGEN
  4. LEVOTHYROXINE [Concomitant]
     Active Substance: LEVOTHYROXINE
  5. LACOSAMIDE [Concomitant]
     Active Substance: LACOSAMIDE
  6. LAMOTRIGINE [Concomitant]
     Active Substance: LAMOTRIGINE
  7. CHOLECALCIFEROL [Concomitant]
     Active Substance: CHOLECALCIFEROL
  8. Calcium-supplementation [Concomitant]
  9. Vitamin-D-supplementation [Concomitant]
  10. PREDNISOLONE [Concomitant]
     Active Substance: PREDNISOLONE
  11. PREGABALIN [Concomitant]
     Active Substance: PREGABALIN
  12. METAMIZOL [Concomitant]
     Active Substance: METAMIZOLE SODIUM
  13. ROSUVASTATIN [Concomitant]
     Active Substance: ROSUVASTATIN
  14. Ezetemib [Concomitant]
  15. PANTOPRAZOLE SODIUM [Concomitant]
     Active Substance: PANTOPRAZOLE SODIUM
  16. LORAZEPAM [Concomitant]
     Active Substance: LORAZEPAM
     Dosage: ON DEMAND

REACTIONS (2)
  - Pulmonary fibrosis [Unknown]
  - Pulmonary function test decreased [Unknown]
